FAERS Safety Report 9760293 (Version 2)
Quarter: 2014Q1

REPORT INFORMATION
  Report Type: Spontaneous
  Country: US (occurrence: US)
  Receive Date: 20131216
  Receipt Date: 20140121
  Transmission Date: 20141002
  Serious: Yes (Death)
  Sender: FDA-Public Use
  Company Number: US-GLAXOSMITHKLINE-A1053230A

PATIENT
  Age: 74 Year
  Sex: Male
  Weight: 61.8 kg

DRUGS (4)
  1. VOTRIENT [Suspect]
     Indication: THYROID CANCER
     Dosage: 400MG TWICE PER DAY
     Route: 048
     Dates: start: 20121220
  2. SYNTHROID [Concomitant]
  3. TERAZOSIN [Concomitant]
  4. LORAZEPAM [Concomitant]

REACTIONS (2)
  - Death [Fatal]
  - Disease progression [Unknown]
